FAERS Safety Report 9955994 (Version 1)
Quarter: 2014Q1

REPORT INFORMATION
  Report Type: Report from Study
  Country: US (occurrence: US)
  Receive Date: 20140304
  Receipt Date: 20140304
  Transmission Date: 20141002
  Serious: Yes (Other)
  Sender: FDA-Public Use
  Company Number: US-ABBVIE-13P-163-1088390-00

PATIENT
  Age: 27 Year
  Sex: Female

DRUGS (2)
  1. HUMIRA [Suspect]
     Indication: PRODUCT USED FOR UNKNOWN INDICATION
     Route: 058
     Dates: start: 201209
  2. HUMIRA [Suspect]
     Route: 058
     Dates: start: 201302

REACTIONS (3)
  - Gastric banding [Unknown]
  - Drug ineffective [Unknown]
  - Skin plaque [Unknown]
